FAERS Safety Report 21458389 (Version 1)
Quarter: 2022Q4

REPORT INFORMATION
  Report Type: Spontaneous
  Country: US (occurrence: US)
  Receive Date: 20221014
  Receipt Date: 20221014
  Transmission Date: 20230112
  Serious: Yes (Hospitalization)
  Sender: FDA-Public Use
  Company Number: US-PFIZER INC-PV202200080014

PATIENT
  Age: 70 Year
  Sex: Male

DRUGS (4)
  1. SPIRONOLACTONE [Suspect]
     Active Substance: SPIRONOLACTONE
     Dosage: UNK
  2. TYVASO [Suspect]
     Active Substance: TREPROSTINIL
     Indication: Pulmonary arterial hypertension
     Dosage: 48 UG (7 BREATHS OF TYVASO, QID)
     Dates: start: 20211028
  3. TYVASO [Suspect]
     Active Substance: TREPROSTINIL
     Dosage: 42 UG
  4. LOSARTAN [Suspect]
     Active Substance: LOSARTAN
     Dosage: UNK

REACTIONS (2)
  - Angiopathy [Unknown]
  - Hypotension [Recovering/Resolving]
